FAERS Safety Report 9444938 (Version 2)
Quarter: 2013Q3

REPORT INFORMATION
  Report Type: Spontaneous
  Country: FR (occurrence: None)
  Receive Date: 20130808
  Receipt Date: 20130808
  Transmission Date: 20140515
  Serious: Yes (Other)
  Sender: FDA-Public Use
  Company Number: 2013037054

PATIENT
  Age: 3 Month
  Sex: 0

DRUGS (1)
  1. IVIG [Suspect]
     Indication: KAWASAKI^S DISEASE
     Dosage: 1000 MG/KG TOTAL  2 DAYS 0 HOURS
     Route: 042

REACTIONS (4)
  - Drug ineffective [None]
  - Off label use [None]
  - Coronary artery aneurysm [None]
  - Condition aggravated [None]
